FAERS Safety Report 6740772-4 (Version None)
Quarter: 2010Q2

REPORT INFORMATION
  Report Type: 
  Country: None (occurrence: None)
  Receive Date: 20100524
  Receipt Date: 20100521
  Transmission Date: 20101027
  Serious: Yes (Congenital Anomaly)
  Sender: FDA-Public Use
  Company Number: 1000008598

PATIENT
  Sex: Male

DRUGS (2)
  1. LEXAPRO [Suspect]
     Dosage: TRANSPLACENTAL
     Route: 064
     Dates: start: 20090301
  2. VITAMIN AND MINERAL PRENATAL SUPPLEMENT W/ FOLIC ACID CAP [Concomitant]

REACTIONS (2)
  - ANENCEPHALY [None]
  - MATERNAL DRUGS AFFECTING FOETUS [None]
